FAERS Safety Report 4660486-4 (Version None)
Quarter: 2005Q2

REPORT INFORMATION
  Report Type: 
  Country: None (occurrence: None)
  Receive Date: 20050511
  Receipt Date: 20050511
  Transmission Date: 20051028
  Serious: Yes (Life-Threatening, Hospitalization)
  Sender: FDA-Public Use
  Company Number: None

PATIENT
  Age: 54 Year
  Sex: Male
  Weight: 71 kg

DRUGS (5)
  1. HYDROCHLOROTHIAZIDE [Suspect]
     Indication: HYPERTENSION
     Dosage: 25 MG PO DAILY
     Route: 048
  2. AMLODIPINE [Concomitant]
  3. PEPCID [Concomitant]
  4. LABETALOL [Concomitant]
  5. DEXAMETHASONE [Concomitant]

REACTIONS (4)
  - BLOOD SODIUM DECREASED [None]
  - CEREBRAL HAEMORRHAGE [None]
  - MENTAL IMPAIRMENT [None]
  - RESTLESSNESS [None]
